FAERS Safety Report 21304479 (Version 1)
Quarter: 2022Q3

REPORT INFORMATION
  Report Type: Spontaneous
  Country: US (occurrence: None)
  Receive Date: 20220907
  Receipt Date: 20220907
  Transmission Date: 20221027
  Serious: No
  Sender: FDA-Public Use
  Company Number: US-ARIS GLOBAL-202108-1454

PATIENT
  Sex: Female

DRUGS (14)
  1. OXERVATE [Suspect]
     Active Substance: CENEGERMIN-BKBJ
     Indication: Neurotrophic keratopathy
     Route: 047
     Dates: start: 20210802
  2. FOLIC ACID [Concomitant]
     Active Substance: FOLIC ACID
  3. PROBIOTICS NOS [Concomitant]
     Active Substance: PROBIOTICS NOS
  4. LYSINE [Concomitant]
     Active Substance: LYSINE
  5. VITAMINS [Concomitant]
     Active Substance: VITAMINS
  6. VITAMIN D3 [Concomitant]
     Active Substance: CHOLECALCIFEROL
     Dosage: 1 MM UNIT/G LIQUID
  7. ASCORBIC ACID [Concomitant]
     Active Substance: ASCORBIC ACID
  8. BIOTIN [Concomitant]
     Active Substance: BIOTIN
  9. IRON [Concomitant]
     Active Substance: IRON
     Dosage: 325(65) MG
  10. MESALAMINE [Concomitant]
     Active Substance: MESALAMINE
     Dosage: DELAYED RELEASE TABLET
  11. LOSARTAN POTASSIUM [Concomitant]
     Active Substance: LOSARTAN POTASSIUM
  12. FAMOTIDINE [Concomitant]
     Active Substance: FAMOTIDINE
  13. CITALOPRAM [Concomitant]
     Active Substance: CITALOPRAM HYDROBROMIDE
  14. ATORVASTATIN CALCIUM [Concomitant]
     Active Substance: ATORVASTATIN CALCIUM

REACTIONS (2)
  - Eye pain [Unknown]
  - Eyelid margin crusting [Unknown]
